FAERS Safety Report 8933737 (Version 1)
Quarter: 2012Q4

REPORT INFORMATION
  Report Type: 
  Country: MX (occurrence: MX)
  Receive Date: 20121129
  Receipt Date: 20121129
  Transmission Date: 20130627
  Serious: Yes (Other)
  Sender: FDA-Public Use
  Company Number: PHHY2012MX108820

PATIENT
  Age: 71 Year
  Sex: Female
  Weight: 77 kg

DRUGS (2)
  1. CO-DIOVAN [Suspect]
     Indication: HYPERTENSION
     Dosage: 1 DF (160/12.5 mg) daily
     Route: 048
     Dates: start: 200902
  2. CO-DIOVAN [Suspect]
     Dosage: 0.5 DF (160/12.5 mg) UNK

REACTIONS (8)
  - Varicose vein [Not Recovered/Not Resolved]
  - Vein pain [Unknown]
  - Micturition disorder [Not Recovered/Not Resolved]
  - Pain in extremity [Not Recovered/Not Resolved]
  - Blood cholesterol increased [Unknown]
  - Blood triglycerides increased [Unknown]
  - Wrong technique in drug usage process [Unknown]
  - Hypotension [Unknown]
